FAERS Safety Report 5744447-X (Version None)
Quarter: 2008Q2

REPORT INFORMATION
  Report Type: 
  Country: None (occurrence: None)
  Receive Date: 20080516
  Receipt Date: 20080502
  Transmission Date: 20081010
  Serious: Yes (Hospitalization)
  Sender: FDA-Public Use
  Company Number: 2008AL003194

PATIENT
  Age: 91 Year
  Sex: Male
  Weight: 53.5244 kg

DRUGS (3)
  1. DIGOXIN [Suspect]
     Indication: CARDIAC DISORDER
     Dosage: 0.125MG DAILY PO
     Route: 048
  2. COUMADIN [Concomitant]
  3. COREG [Concomitant]

REACTIONS (3)
  - DIZZINESS [None]
  - EYE DISORDER [None]
  - MENTAL IMPAIRMENT [None]
